FAERS Safety Report 6432317-3 (Version None)
Quarter: 2009Q4

REPORT INFORMATION
  Report Type: 
  Country: None (occurrence: None)
  Receive Date: 20091109
  Receipt Date: 20091103
  Transmission Date: 20100525
  Serious: Yes (Other)
  Sender: FDA-Public Use
  Company Number: US-CUBIST-2009S1000493

PATIENT

DRUGS (4)
  1. CUBICIN [Suspect]
     Indication: STAPHYLOCOCCAL BACTERAEMIA
  2. CUBICIN [Suspect]
     Indication: OSTEOMYELITIS
  3. VANCOMYCIN [Concomitant]
     Indication: STAPHYLOCOCCAL BACTERAEMIA
  4. VANCOMYCIN [Concomitant]
     Indication: OSTEOMYELITIS

REACTIONS (5)
  - DRUG INEFFECTIVE FOR UNAPPROVED INDICATION [None]
  - INTERVERTEBRAL DISCITIS [None]
  - MINIMUM INHIBITORY CONCENTRATION [None]
  - OSTEOMYELITIS [None]
  - STAPHYLOCOCCAL BACTERAEMIA [None]
